FAERS Safety Report 4385059-2 (Version None)
Quarter: 2004Q2

REPORT INFORMATION
  Report Type: 
  Country: None (occurrence: None)
  Receive Date: 20040623
  Receipt Date: 20040623
  Transmission Date: 20050107
  Serious: Yes (Life-Threatening)
  Sender: FDA-Public Use
  Company Number: None

PATIENT
  Sex: Male
  Weight: 77.1115 kg

DRUGS (3)
  1. CASODEX [Suspect]
     Indication: PROSTATE CANCER
     Dosage: 50 MG PO QD
     Route: 048
     Dates: start: 20040405
  2. CASODEX [Suspect]
     Indication: PROSTATE CANCER
     Dosage: 50 MG PO QD
     Route: 048
     Dates: start: 20040608
  3. ZOLADEX (GROSERELIN) [Concomitant]

REACTIONS (4)
  - HEPATIC ENCEPHALOPATHY [None]
  - HEPATIC FAILURE [None]
  - HYPERCALCAEMIA [None]
  - RENAL FAILURE [None]
